FAERS Safety Report 6058119-8 (Version None)
Quarter: 2009Q1

REPORT INFORMATION
  Report Type: 
  Country: None (occurrence: None)
  Receive Date: 20090130
  Receipt Date: 20090116
  Transmission Date: 20090719
  Serious: Yes (Death)
  Sender: FDA-Public Use
  Company Number: US-RANBAXY-2009RR-21327

PATIENT
  Age: 80 Year
  Sex: Male

DRUGS (2)
  1. LORAZEPAM [Suspect]
     Indication: COMPLETED SUICIDE
     Route: 048
  2. ETHANOL [Suspect]
     Indication: COMPLETED SUICIDE
     Route: 048

REACTIONS (3)
  - CARDIAC ARREST [None]
  - COMPLETED SUICIDE [None]
  - RESPIRATORY ARREST [None]
